FAERS Safety Report 14767986 (Version 1)
Quarter: 2018Q2

REPORT INFORMATION
  Report Type: Spontaneous
  Country: US (occurrence: US)
  Receive Date: 20180410
  Receipt Date: 20180410
  Transmission Date: 20180711
  Serious: Yes (Life-Threatening, Hospitalization, Disabling)
  Sender: FDA-Public Use
  Company Number: None

PATIENT
  Age: 70 Year
  Sex: Female
  Weight: 95.25 kg

DRUGS (5)
  1. ACETAMINOPHEN. [Concomitant]
     Active Substance: ACETAMINOPHEN
  2. CHORTHALIDONE [Concomitant]
     Active Substance: CHLORTHALIDONE
  3. LEVOTHYROXINE. [Concomitant]
     Active Substance: LEVOTHYROXINE
  4. ATORVASTATIN [Suspect]
     Active Substance: ATORVASTATIN
     Indication: BLOOD CHOLESTEROL
     Dosage: ?          QUANTITY:1 DF DOSAGE FORM;?
     Route: 048
     Dates: start: 2013, end: 20180320
  5. PATOPRAZOLE [Concomitant]

REACTIONS (6)
  - Muscular weakness [None]
  - Chromaturia [None]
  - Gait disturbance [None]
  - Muscle injury [None]
  - Blood creatine phosphokinase increased [None]
  - Limb discomfort [None]

NARRATIVE: CASE EVENT DATE: 20180215
